FAERS Safety Report 6329183-3 (Version None)
Quarter: 2009Q3

REPORT INFORMATION
  Report Type: 
  Country: None (occurrence: None)
  Receive Date: 20090825
  Receipt Date: 20090825
  Transmission Date: 20100115
  Serious: Yes (Hospitalization)
  Sender: FDA-Public Use
  Company Number: None

PATIENT
  Sex: Female
  Weight: 23.6 kg

DRUGS (4)
  1. MERCAPTOPURINE [Suspect]
     Dosage: 1500 MG
  2. METHOTREXATE [Suspect]
     Dosage: 64.5 MG
  3. PREDNISONE TAB [Suspect]
     Dosage: 175 MG
  4. VINCRISTINE SULFATE [Suspect]
     Dosage: 1.4 MG

REACTIONS (11)
  - BLOOD BILIRUBIN UNCONJUGATED INCREASED [None]
  - BLOOD CREATININE INCREASED [None]
  - BLOOD LACTATE DEHYDROGENASE INCREASED [None]
  - BLOOD UREA INCREASED [None]
  - HAEMOGLOBIN DECREASED [None]
  - HAEMOLYTIC URAEMIC SYNDROME [None]
  - NUCLEATED RED CELLS [None]
  - PLATELET COUNT DECREASED [None]
  - POLYCHROMASIA [None]
  - RED BLOOD CELL SCHISTOCYTES PRESENT [None]
  - WHITE BLOOD CELL COUNT DECREASED [None]
